FAERS Safety Report 20393293 (Version 2)
Quarter: 2022Q1

REPORT INFORMATION
  Report Type: Spontaneous
  Country: PL (occurrence: PL)
  Receive Date: 20220128
  Receipt Date: 20220203
  Transmission Date: 20220423
  Serious: Yes (Hospitalization, Other)
  Sender: FDA-Public Use
  Company Number: PL-BAYER-2022A012592

PATIENT
  Age: 1 Year

DRUGS (4)
  1. ANTIHEMOPHILIC FACTOR, HUMAN RECOMBINANT [Suspect]
     Active Substance: ANTIHEMOPHILIC FACTOR, HUMAN RECOMBINANT
     Indication: Factor VIII deficiency
     Dosage: 25 U/KG - FIRST DOSE
  2. ANTIHEMOPHILIC FACTOR, HUMAN RECOMBINANT [Suspect]
     Active Substance: ANTIHEMOPHILIC FACTOR, HUMAN RECOMBINANT
     Indication: Factor VIII deficiency
     Dosage: 25 U/KG - SIXTH DOSE
  3. ANTIHEMOPHILIC FACTOR, HUMAN RECOMBINANT [Suspect]
     Active Substance: ANTIHEMOPHILIC FACTOR, HUMAN RECOMBINANT
     Indication: Factor VIII deficiency
     Dosage: 25 U/KG - TENTH DOSE
  4. ANTIHEMOPHILIC FACTOR, HUMAN RECOMBINANT [Suspect]
     Active Substance: ANTIHEMOPHILIC FACTOR, HUMAN RECOMBINANT
     Indication: Factor VIII deficiency
     Dosage: 100 U/KG

REACTIONS (11)
  - Anti factor VIII antibody positive [None]
  - Cerebral haemorrhage [None]
  - Muscle haemorrhage [None]
  - Haemarthrosis [None]
  - Cerebral haemorrhage [Recovering/Resolving]
  - Soft tissue haemorrhage [Recovering/Resolving]
  - Device related thrombosis [None]
  - Device related infection [None]
  - Extremity contracture [Recovered/Resolved]
  - Paresis [Recovered/Resolved]
  - Haematoma [None]
